FAERS Safety Report 7563971-0 (Version None)
Quarter: 2011Q2

REPORT INFORMATION
  Report Type: 
  Country: None (occurrence: None)
  Receive Date: 20110622
  Receipt Date: 20110610
  Transmission Date: 20111010
  Serious: Yes (Hospitalization)
  Sender: FDA-Public Use
  Company Number: US-JNJFOC-20110311431

PATIENT
  Sex: Male
  Weight: 45.7 kg

DRUGS (4)
  1. METHOTREXATE [Concomitant]
  2. MESALAMINE [Concomitant]
  3. INFLIXIMAB, RECOMBINANT [Suspect]
     Indication: COLITIS ULCERATIVE
     Route: 042
     Dates: start: 20100728
  4. INFLIXIMAB, RECOMBINANT [Suspect]
     Route: 042
     Dates: start: 20100907

REACTIONS (1)
  - COLITIS ULCERATIVE [None]
